FAERS Safety Report 6931604-X (Version None)
Quarter: 2010Q3

REPORT INFORMATION
  Report Type: 
  Country: None (occurrence: None)
  Receive Date: 20100813
  Receipt Date: 20100506
  Transmission Date: 20110219
  Serious: No
  Sender: FDA-Public Use
  Company Number: 1000013682

PATIENT
  Age: 50 Year
  Sex: Female

DRUGS (9)
  1. SAVELLA [Suspect]
     Indication: FIBROMYALGIA
     Dosage: 1 IN 1 D, 25 MG (12.5 MG, 2 IN 1 D), ORAL, 50 MG (25 MG, 2 IN 1 D), ORAL
     Dates: start: 20100401, end: 20100401
  2. SAVELLA [Suspect]
     Indication: FIBROMYALGIA
     Dosage: 1 IN 1 D, 25 MG (12.5 MG, 2 IN 1 D), ORAL, 50 MG (25 MG, 2 IN 1 D), ORAL
     Dates: start: 20100402, end: 20100403
  3. SAVELLA [Suspect]
     Indication: FIBROMYALGIA
     Dosage: 1 IN 1 D, 25 MG (12.5 MG, 2 IN 1 D), ORAL, 50 MG (25 MG, 2 IN 1 D), ORAL
     Dates: start: 20100404, end: 20100407
  4. SAVELLA [Suspect]
     Indication: FIBROMYALGIA
     Dosage: 100 MG (50 MG, 2 IN 1 D), ORAL, 50 MG (25 MG, 2 IN 1 D), ORAL
     Route: 048
     Dates: start: 20100401, end: 20100401
  5. SAVELLA [Suspect]
     Indication: FIBROMYALGIA
     Dosage: 100 MG (50 MG, 2 IN 1 D), ORAL, 50 MG (25 MG, 2 IN 1 D), ORAL
     Route: 048
     Dates: start: 20100408, end: 20100401
  6. LANTUS [Concomitant]
  7. METFORMIN [Concomitant]
  8. ACTOS [Concomitant]
  9. SYNTHROID [Concomitant]

REACTIONS (12)
  - APHONIA [None]
  - BLOOD PRESSURE INCREASED [None]
  - DECREASED APPETITE [None]
  - DIZZINESS [None]
  - DYSPNOEA [None]
  - EAR PAIN [None]
  - FATIGUE [None]
  - HEADACHE [None]
  - HEART RATE INCREASED [None]
  - HYPERHIDROSIS [None]
  - OROPHARYNGEAL PAIN [None]
  - VISION BLURRED [None]
